FAERS Safety Report 9907591 (Version 2)
Quarter: 2014Q2

REPORT INFORMATION
  Report Type: Report from Study
  Country: BE (occurrence: BE)
  Receive Date: 20140218
  Receipt Date: 20140515
  Transmission Date: 20141212
  Serious: Yes (Hospitalization)
  Sender: FDA-Public Use
  Company Number: BE-US-EMD SERONO, INC.-7269351

PATIENT
  Age: 71 Year
  Sex: Female

DRUGS (6)
  1. REBIF [Suspect]
     Indication: MULTIPLE SCLEROSIS
     Dates: start: 20130503, end: 20140214
  2. REBIF [Suspect]
     Dates: start: 20140214
  3. MEDROL                             /00049601/ [Suspect]
     Indication: PRODUCT USED FOR UNKNOWN INDICATION
  4. FOLAVIT [Concomitant]
     Indication: PRODUCT USED FOR UNKNOWN INDICATION
  5. DETRUSITOL                         /01350201/ [Concomitant]
     Indication: PRODUCT USED FOR UNKNOWN INDICATION
  6. DAFALGAN                           /00020001/ [Concomitant]
     Indication: PRODUCT USED FOR UNKNOWN INDICATION

REACTIONS (9)
  - Nausea [Unknown]
  - Asthenia [Unknown]
  - Movement disorder [Recovered/Resolved]
  - Vertigo [Recovered/Resolved]
  - Malaise [Recovered/Resolved]
  - Syncope [Recovered/Resolved]
  - Hypertension [Recovered/Resolved]
  - Multiple sclerosis relapse [Unknown]
  - Fatigue [Recovering/Resolving]
